FAERS Safety Report 21312000 (Version 1)
Quarter: 2022Q3

REPORT INFORMATION
  Report Type: Spontaneous
  Country: GR (occurrence: GR)
  Receive Date: 20220909
  Receipt Date: 20220909
  Transmission Date: 20221027
  Serious: Yes (Other)
  Sender: FDA-Public Use
  Company Number: RO-drreddys-LIT/ROM/22/0152463

PATIENT
  Age: 75 Year
  Sex: Female

DRUGS (1)
  1. FONDAPARINUX [Suspect]
     Active Substance: FONDAPARINUX
     Indication: Heparin-induced thrombocytopenia
     Route: 058

REACTIONS (1)
  - Peripheral artery thrombosis [Recovered/Resolved]
